FAERS Safety Report 19406912 (Version 3)
Quarter: 2021Q3

REPORT INFORMATION
  Report Type: Spontaneous
  Country: US (occurrence: US)
  Receive Date: 20210611
  Receipt Date: 20210811
  Transmission Date: 20211014
  Serious: Yes (Death, Hospitalization, Other)
  Sender: FDA-Public Use
  Company Number: US-BAYER-2021-153590

PATIENT
  Age: 82 Year
  Sex: Female

DRUGS (6)
  1. TRAMADOL. [Concomitant]
     Active Substance: TRAMADOL
     Indication: PAIN
  2. IBUPROFEN. [Concomitant]
     Active Substance: IBUPROFEN
     Indication: PAIN
  3. METOPROLOL. [Concomitant]
     Active Substance: METOPROLOL
  4. KETOROLAC [Suspect]
     Active Substance: KETOROLAC TROMETHAMINE
     Dosage: UNK
  5. TYLENOL [Concomitant]
     Active Substance: ACETAMINOPHEN
     Indication: PAIN
  6. BAYER LOW DOSE [Suspect]
     Active Substance: ASPIRIN
     Indication: PAIN
     Dosage: UNK
     Dates: start: 202009

REACTIONS (22)
  - Dysarthria [Unknown]
  - Decreased appetite [Unknown]
  - Abnormal behaviour [Unknown]
  - Spinal fracture [None]
  - Nausea [Unknown]
  - Affect lability [Unknown]
  - Death [Fatal]
  - Back pain [None]
  - Bronchospasm [None]
  - Dysphonia [Unknown]
  - Dyspnoea [Unknown]
  - Anuria [Unknown]
  - Mood altered [Unknown]
  - Lung disorder [Unknown]
  - Belligerence [Unknown]
  - Drug ineffective [None]
  - Product use issue [None]
  - Blood sodium decreased [Unknown]
  - Blood pressure increased [None]
  - Blood electrolytes decreased [Unknown]
  - COVID-19 [Unknown]
  - Dysphagia [Unknown]

NARRATIVE: CASE EVENT DATE: 2021
